FAERS Safety Report 13458396 (Version 1)
Quarter: 2017Q2

REPORT INFORMATION
  Report Type: Spontaneous
  Country: CN (occurrence: CN)
  Receive Date: 20170419
  Receipt Date: 20170419
  Transmission Date: 20170830
  Serious: Yes (Hospitalization)
  Sender: FDA-Public Use
  Company Number: CN-BAYER-2017-068460

PATIENT
  Age: 34 Year
  Sex: Female

DRUGS (1)
  1. NEXAVAR [Suspect]
     Active Substance: SORAFENIB
     Indication: HEPATOCELLULAR CARCINOMA
     Dosage: 400 MG, BID
     Route: 048
     Dates: start: 201401

REACTIONS (4)
  - Metastases to adrenals [None]
  - Hepatocellular carcinoma [None]
  - Metastases to bone [None]
  - Hepatocellular carcinoma [None]

NARRATIVE: CASE EVENT DATE: 201503
